FAERS Safety Report 11776307 (Version 2)
Quarter: 2015Q4

REPORT INFORMATION
  Report Type: Spontaneous
  Country: JP (occurrence: JP)
  Receive Date: 20151125
  Receipt Date: 20151228
  Transmission Date: 20160304
  Serious: Yes (Death, Other)
  Sender: FDA-Public Use
  Company Number: JP-PFIZER INC-2015391790

PATIENT
  Age: 39 Year
  Sex: Male

DRUGS (1)
  1. VFEND [Suspect]
     Active Substance: VORICONAZOLE

REACTIONS (4)
  - Drug level increased [Unknown]
  - Cardiac failure [Unknown]
  - Hepatic enzyme increased [Unknown]
  - Death [Fatal]
